FAERS Safety Report 7401553-1 (Version None)
Quarter: 2011Q2

REPORT INFORMATION
  Report Type: 
  Country: None (occurrence: None)
  Receive Date: 20110408
  Receipt Date: 20110329
  Transmission Date: 20111010
  Serious: Yes (Hospitalization)
  Sender: FDA-Public Use
  Company Number: US-BIOGENIDEC-2009BI037367

PATIENT
  Age: 55 Year
  Sex: Female

DRUGS (3)
  1. AVONEX [Suspect]
     Route: 030
     Dates: start: 20030801, end: 20101201
  2. AVONEX [Suspect]
     Indication: MULTIPLE SCLEROSIS
     Route: 030
     Dates: start: 20101201
  3. AVONEX [Suspect]
     Route: 030
     Dates: start: 20010525, end: 20030801

REACTIONS (6)
  - MENINGIOMA [None]
  - SUICIDAL IDEATION [None]
  - FALL [None]
  - DIPLOPIA [None]
  - DEPRESSION [None]
  - STRESS [None]
